FAERS Safety Report 15857705 (Version 8)
Quarter: 2022Q3

REPORT INFORMATION
  Report Type: Report from Study
  Country: CN (occurrence: CN)
  Receive Date: 20190123
  Receipt Date: 20220823
  Transmission Date: 20221027
  Serious: Yes (Other)
  Sender: FDA-Public Use
  Company Number: CN-JNJFOC-20190122995

PATIENT
  Age: 32 Year
  Sex: Female
  Weight: 42 kg

DRUGS (10)
  1. SIRTURO [Suspect]
     Active Substance: BEDAQUILINE FUMARATE
     Indication: Tuberculosis
     Route: 048
     Dates: start: 20181214, end: 20181228
  2. SIRTURO [Suspect]
     Active Substance: BEDAQUILINE FUMARATE
     Route: 048
     Dates: start: 20181231, end: 20190529
  3. PARA-AMINOSALICYLIC ACID [Suspect]
     Active Substance: AMINOSALICYLIC ACID
     Indication: Tuberculosis
     Route: 048
     Dates: start: 20181213
  4. AMIKACIN [Suspect]
     Active Substance: AMIKACIN
     Indication: Tuberculosis
     Route: 041
     Dates: start: 20181213
  5. CYCLOSERINE [Suspect]
     Active Substance: CYCLOSERINE
     Indication: Tuberculosis
     Route: 048
     Dates: start: 20181213
  6. LINEZOLID [Suspect]
     Active Substance: LINEZOLID
     Indication: Tuberculosis
     Route: 048
     Dates: start: 20181213
  7. CLOFAZIMINE [Suspect]
     Active Substance: CLOFAZIMINE
     Indication: Tuberculosis
     Route: 048
     Dates: start: 20181213, end: 20181228
  8. CLOFAZIMINE [Suspect]
     Active Substance: CLOFAZIMINE
     Route: 048
     Dates: start: 20181228, end: 20190107
  9. GLYCYRRHIZIN [Concomitant]
     Active Substance: GLYCYRRHIZIN
     Route: 065
     Dates: start: 20190110
  10. ESSENTIALE [CYANOCOBALAMIN;NICOTINAMIDE;PHOSPHOLIPIDS;PYRIDOXINE HYDRO [Concomitant]
     Dates: start: 20190211

REACTIONS (3)
  - Hepatotoxicity [Recovered/Resolved]
  - Electrocardiogram QT prolonged [Recovered/Resolved]
  - Electrolyte imbalance [Recovered/Resolved]

NARRATIVE: CASE EVENT DATE: 20190110
